FAERS Safety Report 23245957 (Version 2)
Quarter: 2025Q3

REPORT INFORMATION
  Report Type: Spontaneous
  Country: US (occurrence: US)
  Receive Date: 20231130
  Receipt Date: 20250710
  Transmission Date: 20251020
  Serious: Yes (Hospitalization)
  Sender: ROCHE
  Company Number: US-ROCHE-3462027

PATIENT
  Age: 48 Year
  Sex: Female

DRUGS (1)
  1. EVRYSDI [Suspect]
     Active Substance: RISDIPLAM
     Indication: Spinal muscular atrophy
     Route: 048
     Dates: start: 20201010

REACTIONS (2)
  - Pulmonary hypertension [Unknown]
  - Speech disorder [Unknown]

NARRATIVE: CASE EVENT DATE: 20231103
